FAERS Safety Report 18741164 (Version 1)
Quarter: 2021Q1

REPORT INFORMATION
  Report Type: Spontaneous
  Country: US (occurrence: US)
  Receive Date: 20210114
  Receipt Date: 20210114
  Transmission Date: 20210419
  Serious: Yes (Hospitalization)
  Sender: FDA-Public Use
  Company Number: None

PATIENT
  Age: 72 Year
  Sex: Male
  Weight: 78.93 kg

DRUGS (2)
  1. BAMLANIVIMAB. [Suspect]
     Active Substance: BAMLANIVIMAB
     Indication: COVID-19 TREATMENT
  2. BAMLANIVIMAB. [Concomitant]
     Active Substance: BAMLANIVIMAB
     Dates: start: 20210108, end: 20210108

REACTIONS (10)
  - Fibrin D dimer increased [None]
  - Lung opacity [None]
  - Atrial fibrillation [None]
  - Respiratory distress [None]
  - Oxygen saturation decreased [None]
  - Ejection fraction abnormal [None]
  - Asthenia [None]
  - Pulmonary embolism [None]
  - Fatigue [None]
  - Respiratory failure [None]

NARRATIVE: CASE EVENT DATE: 20210110
